FAERS Safety Report 9058869 (Version 2)
Quarter: 2013Q1

REPORT INFORMATION
  Report Type: Spontaneous
  Country: ES (occurrence: ES)
  Receive Date: 20130211
  Receipt Date: 20130312
  Transmission Date: 20140127
  Serious: Yes (Other)
  Sender: FDA-Public Use
  Company Number: ES-PFIZER INC-2013031767

PATIENT
  Age: 43 Year
  Sex: Female

DRUGS (4)
  1. TAZOCEL [Suspect]
     Indication: POSTOPERATIVE WOUND INFECTION
     Dosage: 4 G, 3X/DAY
     Route: 042
     Dates: start: 20080103, end: 20080121
  2. BROMAZEPAM [Concomitant]
     Indication: INSOMNIA
     Dosage: UNK
     Dates: start: 20080118
  3. PANTOPRAZOL [Concomitant]
     Indication: PROPHYLAXIS AGAINST GASTROINTESTINAL ULCER
     Dosage: UNK
     Dates: start: 20080110, end: 20080204
  4. NOLOTIL [Concomitant]
     Indication: PAIN
     Dosage: 2 G, 4X/DAY
     Route: 042
     Dates: start: 20080103, end: 20080122

REACTIONS (1)
  - Drug reaction with eosinophilia and systemic symptoms [Recovered/Resolved]
